FAERS Safety Report 11063334 (Version 3)
Quarter: 2015Q2

REPORT INFORMATION
  Report Type: Spontaneous
  Country: US (occurrence: US)
  Receive Date: 20150424
  Receipt Date: 20150514
  Transmission Date: 20150821
  Serious: Yes (Hospitalization, Other)
  Sender: FDA-Public Use
  Company Number: US-GLAXOSMITHKLINE INC.-US2015GSK054163

PATIENT
  Age: 76 Year
  Sex: Male

DRUGS (1)
  1. PROMACTA [Suspect]
     Active Substance: ELTROMBOPAG OLAMINE
     Indication: SICKLE CELL ANAEMIA
     Dosage: 150 MG, QD
     Route: 048
     Dates: start: 20141016

REACTIONS (2)
  - Hospitalisation [Recovered/Resolved]
  - Aplastic anaemia [Unknown]

NARRATIVE: CASE EVENT DATE: 20150330
